FAERS Safety Report 22103722 (Version 1)
Quarter: 2023Q1

REPORT INFORMATION
  Report Type: Report from Study
  Country: US (occurrence: US)
  Receive Date: 20230316
  Receipt Date: 20230316
  Transmission Date: 20230417
  Serious: Yes (Death, Life-Threatening, Other)
  Sender: FDA-Public Use
  Company Number: US-PURDUE PHARMA-USA-2023-0300488

PATIENT
  Age: 70 Year
  Sex: Male

DRUGS (2)
  1. LIDOCAINE [Suspect]
     Active Substance: LIDOCAINE
     Indication: Product used for unknown indication
     Dosage: UNK
     Route: 065
  2. EPINEPHRINE [Suspect]
     Active Substance: EPINEPHRINE
     Indication: Product used for unknown indication
     Dosage: UNK
     Route: 042

REACTIONS (5)
  - Death [Fatal]
  - Cardiac arrest [Unknown]
  - Loss of consciousness [Unknown]
  - Seizure like phenomena [Unknown]
  - Medication error [Unknown]

NARRATIVE: CASE EVENT DATE: 20210101
